FAERS Safety Report 5155576-6 (Version None)
Quarter: 2006Q4

REPORT INFORMATION
  Report Type: 
  Country: None (occurrence: None)
  Receive Date: 20061114
  Receipt Date: 20061103
  Transmission Date: 20070319
  Serious: Yes (Other)
  Sender: FDA-Public Use
  Company Number: GXKR2006US07088

PATIENT
  Sex: Female

DRUGS (2)
  1. FLECAINIDE (NGX) (FLECAINIDE) UNKNOWN [Suspect]
     Dosage: TTRANSPLACENTAL
     Route: 064
  2. DIGOXIN [Suspect]
     Dosage: TRANSPLANCENTAL; 88 UG/KG, INTRAMUSCULAR
     Route: 064

REACTIONS (10)
  - APGAR SCORE LOW [None]
  - ATRIAL FLUTTER [None]
  - CAESAREAN SECTION [None]
  - DRUG EXPOSURE DURING PREGNANCY [None]
  - DRUG INEFFECTIVE [None]
  - HYPERBILIRUBINAEMIA NEONATAL [None]
  - NEONATAL RESPIRATORY DISTRESS SYNDROME [None]
  - PREMATURE BABY [None]
  - RETINOPATHY OF PREMATURITY [None]
  - VENTRICULAR DYSFUNCTION [None]
